FAERS Safety Report 15427321 (Version 2)
Quarter: 2018Q4

REPORT INFORMATION
  Report Type: Report from Study
  Country: US (occurrence: US)
  Receive Date: 20180925
  Receipt Date: 20181112
  Transmission Date: 20190204
  Serious: Yes (Other)
  Sender: FDA-Public Use
  Company Number: US-SA-2018SA262950

PATIENT
  Age: 65 Year
  Sex: Female

DRUGS (1)
  1. INSULIN GLARGINE [Suspect]
     Active Substance: INSULIN GLARGINE
     Indication: TYPE 2 DIABETES MELLITUS
     Dosage: 25-30 UNITS NIGHTLY

REACTIONS (5)
  - Rotator cuff syndrome [Unknown]
  - Product storage error [Unknown]
  - Limb injury [Unknown]
  - Musculoskeletal pain [Unknown]
  - Fall [Unknown]

NARRATIVE: CASE EVENT DATE: 20180924
